FAERS Safety Report 17486067 (Version 1)
Quarter: 2020Q1

REPORT INFORMATION
  Report Type: Spontaneous
  Country: IT (occurrence: IT)
  Receive Date: 20200303
  Receipt Date: 20200303
  Transmission Date: 20200409
  Serious: Yes (Hospitalization)
  Sender: FDA-Public Use
  Company Number: IT-CHEPLA-C20200820

PATIENT
  Age: 66 Year
  Sex: Male
  Weight: 46 kg

DRUGS (5)
  1. CARDICOR 1,25 MG COMPRESSE RIVESTITE CON FILM [Concomitant]
     Active Substance: BISOPROLOL FUMARATE
     Indication: ATRIAL FIBRILLATION
     Route: 048
     Dates: start: 20191119, end: 20191128
  2. PARAFFINA LIQUIDA SELLA [Concomitant]
     Indication: IRRITABLE BOWEL SYNDROME
     Route: 048
     Dates: start: 20191122, end: 20191128
  3. LANTUS [Concomitant]
     Active Substance: INSULIN GLARGINE
     Indication: TYPE 2 DIABETES MELLITUS
     Route: 058
     Dates: start: 20191120, end: 20191128
  4. TAMSULOSIN DOC GENERICI 0,4 MG CAPSULE RIGIDE A RILASCIO MODIFICATO [Concomitant]
     Indication: BENIGN PROSTATIC HYPERPLASIA
     Route: 048
     Dates: start: 20191118, end: 20191128
  5. CITOVIRAX 500 MG POLVERE PER CONCENTRATO PER SOLUZIONE PER INFUSIONE [Suspect]
     Active Substance: GANCICLOVIR
     Indication: CYTOMEGALOVIRUS COLITIS
     Route: 042
     Dates: start: 20191118, end: 20191128

REACTIONS (2)
  - Encephalopathy [Recovering/Resolving]
  - Delirium tremens [Recovering/Resolving]

NARRATIVE: CASE EVENT DATE: 20191123
